FAERS Safety Report 13511404 (Version 1)
Quarter: 2017Q2

REPORT INFORMATION
  Report Type: Report from Study
  Country: ES (occurrence: ES)
  Receive Date: 20170504
  Receipt Date: 20170504
  Transmission Date: 20170830
  Serious: Yes (Hospitalization)
  Sender: FDA-Public Use
  Company Number: ES-VELOXIS PHARMACEUTICALS-2020202

PATIENT
  Age: 61 Year
  Sex: Male

DRUGS (8)
  1. COTRIMOXAZOL [Concomitant]
     Active Substance: SULFAMETHOXAZOLE\TRIMETHOPRIM
  2. INSULIN [Concomitant]
     Active Substance: INSULIN NOS
  3. PREDNISONE. [Concomitant]
     Active Substance: PREDNISONE
     Dates: start: 20170327
  4. OMEPRAZOLE. [Concomitant]
     Active Substance: OMEPRAZOLE
  5. ENVARSUS XR [Suspect]
     Active Substance: TACROLIMUS
     Indication: LIVER TRANSPLANT
     Route: 048
     Dates: start: 20170331
  6. LAMIVUDINE. [Concomitant]
     Active Substance: LAMIVUDINE
  7. MYCOPHENOLATE MOFETIL. [Concomitant]
     Active Substance: MYCOPHENOLATE MOFETIL
     Dates: start: 20170327
  8. CLEXANE [Concomitant]
     Active Substance: ENOXAPARIN SODIUM

REACTIONS (2)
  - Transplant rejection [Unknown]
  - Immunosuppressant drug level decreased [Unknown]

NARRATIVE: CASE EVENT DATE: 20170419
